FAERS Safety Report 12507687 (Version 1)
Quarter: 2016Q2

REPORT INFORMATION
  Report Type: Spontaneous
  Country: None (occurrence: FR)
  Receive Date: 20160629
  Receipt Date: 20160629
  Transmission Date: 20160815
  Serious: Yes (Other)
  Sender: FDA-Public Use
  Company Number: FR-AUROBINDO-AUR-APL-2016-08286

PATIENT
  Age: 5 Year
  Sex: Female

DRUGS (4)
  1. OXOMEMAZINE [Suspect]
     Active Substance: OXOMEMAZINE
     Indication: COUGH
     Dosage: 1 DF, ONCE A DAY
     Route: 048
  2. PARALYOC [Suspect]
     Active Substance: ACETAMINOPHEN
     Indication: COUGH
     Dosage: 250 MG, UNK
     Route: 048
  3. TOBRABACT [Suspect]
     Active Substance: TOBRAMYCIN
     Indication: CONJUNCTIVITIS
     Dosage: 1 GTT, 3 TIMES A DAY
     Route: 047
     Dates: start: 20151116, end: 20151121
  4. CEFPODOXIME ARROW [Suspect]
     Active Substance: CEFPODOXIME
     Indication: UPPER RESPIRATORY TRACT INFECTION
     Dosage: 1 DF, TWO TIMES A DAY
     Route: 048
     Dates: start: 20151116, end: 20151123

REACTIONS (3)
  - Weight decreased [Unknown]
  - Clostridium test positive [Recovered/Resolved]
  - Diarrhoea [Recovered/Resolved]

NARRATIVE: CASE EVENT DATE: 20151120
